FAERS Safety Report 10761003 (Version 1)
Quarter: 2015Q1

REPORT INFORMATION
  Report Type: Spontaneous
  Country: US (occurrence: None)
  Receive Date: 20150203
  Receipt Date: 20150203
  Transmission Date: 20150721
  Serious: Yes (Disabling)
  Sender: FDA-Public Use
  Company Number: None

PATIENT
  Age: 35 Year
  Sex: Male
  Weight: 86.18 kg

DRUGS (1)
  1. TAMIFLU [Suspect]
     Active Substance: OSELTAMIVIR PHOSPHATE
     Indication: INFLUENZA
     Dosage: 2 PILLS TWICE DAILY TAKEN BY MOUTH
     Route: 048
     Dates: start: 20150201, end: 20150202

REACTIONS (2)
  - Ear disorder [None]
  - Tinnitus [None]

NARRATIVE: CASE EVENT DATE: 20150201
